FAERS Safety Report 14567837 (Version 1)
Quarter: 2018Q1

REPORT INFORMATION
  Report Type: Spontaneous
  Country: US (occurrence: US)
  Receive Date: 20180223
  Receipt Date: 20180223
  Transmission Date: 20180509
  Serious: No
  Sender: FDA-Public Use
  Company Number: US-FERRINGPH-2017FE02023

PATIENT
  Age: 12 Year
  Sex: Male

DRUGS (1)
  1. STIMATE [Suspect]
     Active Substance: DESMOPRESSIN ACETATE
     Indication: PLATELET DYSFUNCTION
     Dosage: 150 ?G, AS NEEDED
     Route: 045
     Dates: start: 20160822

REACTIONS (2)
  - Product use in unapproved indication [Unknown]
  - Epistaxis [Unknown]

NARRATIVE: CASE EVENT DATE: 20160822
